FAERS Safety Report 20050827 (Version 1)
Quarter: 2021Q4

REPORT INFORMATION
  Report Type: Spontaneous
  Country: US (occurrence: US)
  Receive Date: 20211110
  Receipt Date: 20211110
  Transmission Date: 20220304
  Serious: No
  Sender: FDA-Public Use
  Company Number: US-ORGANON-O2111USA000240

PATIENT

DRUGS (1)
  1. SINGULAIR [Suspect]
     Active Substance: MONTELUKAST SODIUM
     Indication: Aspirin-exacerbated respiratory disease
     Dosage: UNK
     Dates: start: 20211001

REACTIONS (2)
  - Stomatitis [Not Recovered/Not Resolved]
  - pH body fluid abnormal [Unknown]

NARRATIVE: CASE EVENT DATE: 20211001
